FAERS Safety Report 20295643 (Version 3)
Quarter: 2022Q1

REPORT INFORMATION
  Report Type: Spontaneous
  Country: CA (occurrence: CA)
  Receive Date: 20220104
  Receipt Date: 20220302
  Transmission Date: 20220423
  Serious: Yes (Other)
  Sender: FDA-Public Use
  Company Number: CA-CELLTRION INC.-2021CA018013

PATIENT

DRUGS (5)
  1. INFLECTRA [Suspect]
     Active Substance: INFLIXIMAB-DYYB
     Indication: Colitis ulcerative
     Dosage: 5 MG/KG (WEEK 0 RECEIVED IN HOSPITAL)
     Route: 042
     Dates: start: 20211112, end: 20211112
  2. INFLECTRA [Suspect]
     Active Substance: INFLIXIMAB-DYYB
     Dosage: 10 MG/KG (Q2.6 WEEKS THEN EVERY 8 WEEKS)
     Route: 042
     Dates: start: 20211126
  3. INFLECTRA [Suspect]
     Active Substance: INFLIXIMAB-DYYB
     Dosage: 10 MG/KG (Q2.6 WEEKS THEN EVERY 8 WEEKS)
     Route: 042
     Dates: start: 20211126
  4. INFLECTRA [Suspect]
     Active Substance: INFLIXIMAB-DYYB
     Dosage: UNK
     Route: 042
     Dates: start: 20211223
  5. INFLECTRA [Suspect]
     Active Substance: INFLIXIMAB-DYYB
     Dosage: 10 MG/KG, Q2.6 WEEKS THEN EVERY 8 WEEKS
     Route: 042
     Dates: start: 20220218

REACTIONS (2)
  - Weight increased [Not Recovered/Not Resolved]
  - Condition aggravated [Not Recovered/Not Resolved]

NARRATIVE: CASE EVENT DATE: 20211223
